FAERS Safety Report 7594641-0 (Version None)
Quarter: 2011Q3

REPORT INFORMATION
  Report Type: 
  Country: None (occurrence: None)
  Receive Date: 20110707
  Receipt Date: 20110630
  Transmission Date: 20111222
  Serious: No
  Sender: FDA-Public Use
  Company Number: FR-SANOFI-AVENTIS-2011SA029236

PATIENT
  Age: 66 Year
  Sex: Female

DRUGS (2)
  1. GEMCITABINE [Concomitant]
     Indication: METASTASES TO LUNG
  2. TAXOTERE [Suspect]
     Indication: METASTASES TO LUNG

REACTIONS (1)
  - ROSACEA [None]
